FAERS Safety Report 10351693 (Version 3)
Quarter: 2015Q2

REPORT INFORMATION
  Report Type: Report from Study
  Country: US (occurrence: US)
  Receive Date: 20140730
  Receipt Date: 20150413
  Transmission Date: 20150821
  Serious: Yes (Hospitalization)
  Sender: FDA-Public Use
  Company Number: PHEH2014US014898

PATIENT
  Sex: Male
  Weight: 54.42 kg

DRUGS (2)
  1. TOBI PODHALER [Suspect]
     Active Substance: TOBRAMYCIN
     Indication: CYSTIC FIBROSIS
     Dosage: 112 MG,(4 CAP) BID
     Route: 055
     Dates: start: 20130611, end: 20140520
  2. TOBI PODHALER [Suspect]
     Active Substance: TOBRAMYCIN
     Indication: PSEUDOMONAS INFECTION

REACTIONS (3)
  - Cough [Recovered/Resolved]
  - Culture positive [Unknown]
  - Pulmonary function test decreased [Unknown]
